FAERS Safety Report 7461085-1 (Version None)
Quarter: 2011Q2

REPORT INFORMATION
  Report Type: 
  Country: None (occurrence: None)
  Receive Date: 20110505
  Receipt Date: 20110427
  Transmission Date: 20111010
  Serious: Yes (Hospitalization, Other)
  Sender: FDA-Public Use
  Company Number: US-MERCK-0811USA03167

PATIENT
  Age: 67 Year
  Sex: Female

DRUGS (1)
  1. FOSAMAX [Suspect]
     Indication: OSTEOPOROSIS
     Route: 048
     Dates: start: 20020118, end: 20080115

REACTIONS (37)
  - ANXIETY DISORDER [None]
  - JAW FRACTURE [None]
  - ARTHROPATHY [None]
  - DEPRESSION [None]
  - HAEMORRHOIDS [None]
  - TOOTH ABSCESS [None]
  - POST PROCEDURAL COMPLICATION [None]
  - BONE LOSS [None]
  - ADJUSTMENT DISORDER WITH DEPRESSED MOOD [None]
  - SYNCOPE [None]
  - MYOCARDIAL INFARCTION [None]
  - VESTIBULAR ATAXIA [None]
  - CAROTID ARTERY STENOSIS [None]
  - CHEST PAIN [None]
  - BACK PAIN [None]
  - IRON DEFICIENCY ANAEMIA [None]
  - CONSTIPATION [None]
  - BONE DENSITY DECREASED [None]
  - CONVULSION [None]
  - SKIN CANCER [None]
  - FUNGAL INFECTION [None]
  - OSTEOMYELITIS [None]
  - BLOOD DISORDER [None]
  - MIGRAINE [None]
  - COLONIC POLYP [None]
  - MAMMOPLASTY [None]
  - UPPER LIMB FRACTURE [None]
  - BREAST MALFORMATION [None]
  - OSTEONECROSIS OF JAW [None]
  - ADVERSE DRUG REACTION [None]
  - CHRONIC SINUSITIS [None]
  - ORTHOSTATIC HYPOTENSION [None]
  - FISTULA [None]
  - FALL [None]
  - TEMPOROMANDIBULAR JOINT SYNDROME [None]
  - POOR QUALITY SLEEP [None]
  - DIVERTICULUM [None]
